FAERS Safety Report 7724089-7 (Version None)
Quarter: 2011Q3

REPORT INFORMATION
  Report Type: 
  Country: None (occurrence: None)
  Receive Date: 20110901
  Receipt Date: 20110829
  Transmission Date: 20111222
  Serious: Yes (Death, Other)
  Sender: FDA-Public Use
  Company Number: US-BAYER-2011-046692

PATIENT
  Age: 70 Year
  Sex: Male

DRUGS (10)
  1. MEGESTROL ACETATE [Concomitant]
  2. EXFORGE [Concomitant]
     Dosage: 5-320MG
  3. NYQUIL [Concomitant]
  4. METFORMIN [Concomitant]
     Indication: DIABETES MELLITUS
     Dosage: DOSE ADJUSTED
  5. PROFIDOX [Concomitant]
  6. NEXAVAR [Suspect]
     Indication: HEPATIC NEOPLASM MALIGNANT
     Dosage: 400 MG, BID
     Route: 048
     Dates: start: 20110518
  7. VICODIN ES [Concomitant]
     Dosage: 7.5-750
  8. CENTRUM SILVER [Concomitant]
  9. ZOLPIDEM [Concomitant]
     Dosage: 10 MG
  10. EXFORGE [Concomitant]
     Dosage: 10 MG, QD

REACTIONS (17)
  - DEATH [None]
  - CONSTIPATION [None]
  - ALPHA 1 FOETOPROTEIN INCREASED [None]
  - LIVER FUNCTION TEST ABNORMAL [None]
  - APPETITE DISORDER [None]
  - ABDOMINAL DISTENSION [None]
  - FLATULENCE [None]
  - ERYTHEMA [None]
  - ABDOMINAL PAIN [None]
  - SKIN DISCOMFORT [None]
  - RASH [None]
  - DECREASED APPETITE [None]
  - ABDOMINAL PAIN UPPER [None]
  - DIARRHOEA [None]
  - BLOOD PRESSURE INCREASED [None]
  - FATIGUE [None]
  - DIABETES MELLITUS [None]
